FAERS Safety Report 17823031 (Version 1)
Quarter: 2020Q2

REPORT INFORMATION
  Report Type: Spontaneous
  Country: US (occurrence: US)
  Receive Date: 20200524
  Receipt Date: 20200524
  Transmission Date: 20200714
  Serious: No
  Sender: FDA-Public Use
  Company Number: None

PATIENT
  Age: 62 Year
  Sex: Male
  Weight: 87.1 kg

DRUGS (20)
  1. VERSED [Concomitant]
     Active Substance: MIDAZOLAM HYDROCHLORIDE
  2. HYDRALAZINE [Concomitant]
     Active Substance: HYDRALAZINE HYDROCHLORIDE
  3. HUMALOG [Concomitant]
     Active Substance: INSULIN LISPRO
  4. KEPPRA [Concomitant]
     Active Substance: LEVETIRACETAM
  5. REMDESIVIR. [Suspect]
     Active Substance: REMDESIVIR
     Indication: COVID-19
     Route: 042
     Dates: start: 20200521, end: 20200522
  6. PLAVIX [Concomitant]
     Active Substance: CLOPIDOGREL BISULFATE
  7. FENTANYL. [Concomitant]
     Active Substance: FENTANYL
  8. CRESTOR [Concomitant]
     Active Substance: ROSUVASTATIN CALCIUM
  9. ATIVAN [Concomitant]
     Active Substance: LORAZEPAM
  10. VECURONIUM [Concomitant]
     Active Substance: VECURONIUM BROMIDE
  11. SOLU-MEDROL [Concomitant]
     Active Substance: METHYLPREDNISOLONE SODIUM SUCCINATE
  12. TYLENOL [Concomitant]
     Active Substance: ACETAMINOPHEN
  13. LOVENOX [Concomitant]
     Active Substance: ENOXAPARIN SODIUM
  14. LEVOPHED [Concomitant]
     Active Substance: NOREPINEPHRINE BITARTRATE
  15. PROPOFOL. [Concomitant]
     Active Substance: PROPOFOL
  16. HUMULIN NOS [Concomitant]
     Active Substance: INSULIN HUMAN
  17. SODIUM BICARBONATE. [Concomitant]
     Active Substance: SODIUM BICARBONATE
  18. OMEPRAZOLE. [Concomitant]
     Active Substance: OMEPRAZOLE
  19. MELATONIN [Concomitant]
     Active Substance: MELATONIN
  20. NITROGLYCERIN. [Concomitant]
     Active Substance: NITROGLYCERIN

REACTIONS (2)
  - Liver function test increased [None]
  - Blood creatinine increased [None]

NARRATIVE: CASE EVENT DATE: 20200521
